FAERS Safety Report 12897755 (Version 1)
Quarter: 2016Q4

REPORT INFORMATION
  Report Type: Report from Study
  Country: None (occurrence: US)
  Receive Date: 20161031
  Receipt Date: 20161031
  Transmission Date: 20170207
  Serious: Yes (Other)
  Sender: FDA-Public Use
  Company Number: US-ABBVIE-16K-163-1765167-00

PATIENT
  Age: 77 Year
  Sex: Female

DRUGS (2)
  1. HUMIRA [Suspect]
     Active Substance: ADALIMUMAB
     Indication: PSORIATIC ARTHROPATHY
     Route: 058
     Dates: start: 201509, end: 201609
  2. CORTISONE [Concomitant]
     Active Substance: CORTISONE\HYDROCORTISONE
     Indication: PRODUCT USED FOR UNKNOWN INDICATION
     Dosage: IN RIGHT THIGH
     Dates: start: 201608, end: 201608

REACTIONS (6)
  - Neck mass [Recovered/Resolved]
  - Cystitis [Recovered/Resolved]
  - Suture related complication [Not Recovered/Not Resolved]
  - Amnesia [Unknown]
  - Post procedural discharge [Unknown]
  - Deafness [Unknown]

NARRATIVE: CASE EVENT DATE: 201609
